FAERS Safety Report 7522139-4 (Version None)
Quarter: 2011Q2

REPORT INFORMATION
  Report Type: 
  Country: None (occurrence: None)
  Receive Date: 20110603
  Receipt Date: 20110531
  Transmission Date: 20111010
  Serious: Yes (Hospitalization, Other)
  Sender: FDA-Public Use
  Company Number: GB-PFIZER INC-2011117001

PATIENT
  Sex: Female

DRUGS (2)
  1. TRAMADOL [Concomitant]
     Dosage: UNK
  2. LYRICA [Suspect]
     Indication: NEURALGIA
     Dosage: 300 MG, 3X/DAY

REACTIONS (1)
  - DRUG WITHDRAWAL CONVULSIONS [None]
